FAERS Safety Report 8877109 (Version 1)
Quarter: 2012Q4

REPORT INFORMATION
  Report Type: 
  Country: US (occurrence: US)
  Receive Date: 20121023
  Receipt Date: 20121023
  Transmission Date: 20130627
  Serious: No
  Sender: FDA-Public Use
  Company Number: US-AMGEN-USASP2012057400

PATIENT
  Age: 50 Year
  Sex: Female
  Weight: 90.7 kg

DRUGS (10)
  1. ENBREL [Suspect]
     Indication: PRODUCT USED FOR UNKNOWN INDICATION
     Dosage: 50 mg, qwk
     Route: 058
  2. SAVELLA [Concomitant]
     Dosage: 25 mg, UNK
  3. SULFASALAZIN [Concomitant]
     Dosage: 500 mg, UNK
  4. GABAPENTIN [Concomitant]
     Dosage: 100 mg, UNK
  5. NORCO [Concomitant]
     Dosage: 10-325 mg
  6. BACLOFEN [Concomitant]
     Dosage: 10 mg, UNK
  7. VITAMIN D /00107901/ [Concomitant]
     Dosage: 1000 IU
  8. PREVACID [Concomitant]
     Dosage: 15 mg, UNK
  9. KENALOG [Concomitant]
     Dosage: 10 MG/ML
  10. LORTAB                             /00607101/ [Concomitant]
     Dosage: 500 mg, UNK

REACTIONS (1)
  - Drug ineffective [Unknown]
